FAERS Safety Report 11281280 (Version 15)
Quarter: 2017Q1

REPORT INFORMATION
  Report Type: Report from Study
  Country: AT (occurrence: AT)
  Receive Date: 20150717
  Receipt Date: 20170217
  Transmission Date: 20170428
  Serious: Yes (Hospitalization, Other)
  Sender: FDA-Public Use
  Company Number: AT-INCYTE CORPORATION-2013IN002349

PATIENT
  Age: 72 Year
  Sex: Female
  Weight: 53 kg

DRUGS (96)
  1. JAKAVI [Suspect]
     Active Substance: RUXOLITINIB
     Dosage: 5 MG, 2 DF, BID
     Route: 048
  2. BISOCOR [Concomitant]
     Active Substance: BISOPROLOL FUMARATE
     Dosage: 0.5 MG, QD
     Route: 065
  3. EUTHYROX [Concomitant]
     Active Substance: LEVOTHYROXINE SODIUM
     Indication: PRODUCT USED FOR UNKNOWN INDICATION
     Dosage: 37.5 NG, QD
     Route: 065
     Dates: start: 20140306
  4. OTRIVIN [Concomitant]
     Active Substance: XYLOMETAZOLINE
  5. NEXIUM [Concomitant]
     Active Substance: ESOMEPRAZOLE MAGNESIUM
     Indication: PRODUCT USED FOR UNKNOWN INDICATION
     Route: 065
  6. NEXIUM [Concomitant]
     Active Substance: ESOMEPRAZOLE MAGNESIUM
     Dosage: 40 MG, QD (1-0-0)
  7. NEXIUM [Concomitant]
     Active Substance: ESOMEPRAZOLE MAGNESIUM
     Dosage: 40 MG, QD (1-0-0)
  8. UROSIN [Concomitant]
     Active Substance: ALLOPURINOL
     Dosage: 0.5 DF, ON EVEN DAY
     Route: 065
  9. UROSIN [Concomitant]
     Active Substance: ALLOPURINOL
     Dosage: 0.5 DF, MON, WED, FRI
  10. UROSIN [Concomitant]
     Active Substance: ALLOPURINOL
     Dosage: 0.5 DF, ON EVEN DAY
     Route: 065
  11. UROSIN [Concomitant]
     Active Substance: ALLOPURINOL
     Route: 065
  12. NEURONTIN [Concomitant]
     Active Substance: GABAPENTIN
     Indication: CHEST PAIN
     Dosage: 300 MG, QD
  13. NEURONTIN [Concomitant]
     Active Substance: GABAPENTIN
     Route: 065
  14. ALLOPURINOL. [Concomitant]
     Active Substance: ALLOPURINOL
     Dosage: 300 MG, ON EVEN DAYS
     Route: 065
  15. ALLOPURINOL. [Concomitant]
     Active Substance: ALLOPURINOL
     Dosage: 0.5 DF, QD
     Route: 065
  16. CALCIUM GLYCEROPHOSPHATE\CELLULOSE\POLYETHYLENE GLYCOL\SACCHARIN SODIUM\SODIUM HYDROXIDE\SODIUM LAURYL SULFATE\SODIUM MAGNESIUM SILICATE\SODIUM MONOFLUOROPHOSPHATE\SORBITOL\WATER [Concomitant]
     Active Substance: CALCIUM GLYCEROPHOSPHATE\POLYETHYLENE GLYCOLS\POWDERED CELLULOSE\SACCHARIN SODIUM DIHYDRATE\SODIUM HYDROXIDE\SODIUM LAURYL SULFATE\SODIUM MAGNESIUM SILICATE\SODIUM MONOFLUOROPHOSPHATE\SORBITOL\WATER
     Route: 065
  17. METFORMIN [Concomitant]
     Active Substance: METFORMIN HYDROCHLORIDE
     Dosage: 850 MG, QD (0-0-1)
     Route: 065
  18. JAKAVI [Suspect]
     Active Substance: RUXOLITINIB
     Indication: MYELOFIBROSIS
     Dosage: 15 MG, QD
     Route: 048
     Dates: start: 20111102
  19. JAKAVI [Suspect]
     Active Substance: RUXOLITINIB
     Dosage: 20 MG, QD
     Route: 048
     Dates: start: 20111202
  20. OTRIVIN [Concomitant]
     Active Substance: XYLOMETAZOLINE
     Indication: RHINORRHOEA
     Dosage: 1 DF, TID
     Route: 065
  21. UROSIN [Concomitant]
     Active Substance: ALLOPURINOL
     Route: 065
  22. UROSIN [Concomitant]
     Active Substance: ALLOPURINOL
     Dosage: 0.5 DF, ON EVEN DAY
     Route: 065
  23. NEURONTIN [Concomitant]
     Active Substance: GABAPENTIN
     Route: 065
  24. AUGMENTIN [Concomitant]
     Active Substance: AMOXICILLIN\CLAVULANATE POTASSIUM
  25. AUGMENTIN [Concomitant]
     Active Substance: AMOXICILLIN\CLAVULANATE POTASSIUM
  26. CLYSMOL [Concomitant]
     Indication: CONSTIPATION
  27. CLYSMOL [Concomitant]
  28. CLYSMOL [Concomitant]
  29. KEFLEX [Concomitant]
     Active Substance: CEPHALEXIN
  30. XANOR [Concomitant]
     Active Substance: ALPRAZOLAM
     Indication: PRODUCT USED FOR UNKNOWN INDICATION
     Dosage: 0.5 MG, QD
     Route: 065
  31. METFORMIN [Concomitant]
     Active Substance: METFORMIN HYDROCHLORIDE
     Indication: PRODUCT USED FOR UNKNOWN INDICATION
     Dosage: 850 MG, QD (0-0-1)
     Route: 065
  32. JAKAVI [Suspect]
     Active Substance: RUXOLITINIB
     Dosage: 15 MG, QD
     Route: 048
     Dates: start: 20130507, end: 20140716
  33. DIOVAN [Concomitant]
     Active Substance: VALSARTAN
     Indication: HYPERTENSION
     Dosage: 160 MG, QD (1-0-0)
     Route: 065
     Dates: start: 20111116
  34. XARELTO [Concomitant]
     Active Substance: RIVAROXABAN
     Indication: PRODUCT USED FOR UNKNOWN INDICATION
  35. EUTHYROX [Concomitant]
     Active Substance: LEVOTHYROXINE SODIUM
     Dosage: 25 UG, UNK
     Route: 065
  36. ZOLDEM [Concomitant]
     Active Substance: ZOLPIDEM TARTRATE
     Indication: PRODUCT USED FOR UNKNOWN INDICATION
     Dosage: 10 MG, QD
     Route: 065
     Dates: start: 20150118
  37. DIABETEX [Concomitant]
     Dosage: UNK, QD
     Route: 065
  38. UROSIN [Concomitant]
     Active Substance: ALLOPURINOL
     Dosage: 0.5 DF, MON, WED, FRI
  39. AUGMENTIN [Concomitant]
     Active Substance: AMOXICILLIN\CLAVULANATE POTASSIUM
  40. AUGMENTIN [Concomitant]
     Active Substance: AMOXICILLIN\CLAVULANATE POTASSIUM
  41. KEFLEX [Concomitant]
     Active Substance: CEPHALEXIN
  42. KEFLEX [Concomitant]
     Active Substance: CEPHALEXIN
  43. ALLOPURINOL. [Concomitant]
     Active Substance: ALLOPURINOL
     Dosage: 300 MG, ON EVEN DAYS
     Route: 065
  44. ALLOPURINOL. [Concomitant]
     Active Substance: ALLOPURINOL
     Dosage: 0.5 DF, QD
     Route: 065
  45. TRITTICO [Concomitant]
     Active Substance: TRAZODONE HYDROCHLORIDE
     Indication: PRODUCT USED FOR UNKNOWN INDICATION
     Dosage: 0.33 DF, UNK
  46. METFORMIN [Concomitant]
     Active Substance: METFORMIN HYDROCHLORIDE
     Dosage: 850 MG, QD (0-0-1)
     Route: 065
  47. BISOCOR [Concomitant]
     Active Substance: BISOPROLOL FUMARATE
     Indication: PRODUCT USED FOR UNKNOWN INDICATION
     Dosage: 5 MG, QD
     Route: 065
     Dates: start: 20141117
  48. UROSIN [Concomitant]
     Active Substance: ALLOPURINOL
     Dosage: UNK, QD
     Route: 065
  49. UROSIN [Concomitant]
     Active Substance: ALLOPURINOL
     Dosage: 0.5 DF, ON EVEN DAY
     Route: 065
  50. UROSIN [Concomitant]
     Active Substance: ALLOPURINOL
     Dosage: 0.5 DF, ON EVEN DAY
     Route: 065
  51. NEURONTIN [Concomitant]
     Active Substance: GABAPENTIN
     Route: 065
  52. CLYSMOL [Concomitant]
  53. TRITTICO [Concomitant]
     Active Substance: TRAZODONE HYDROCHLORIDE
     Route: 065
  54. XARELTO [Concomitant]
     Active Substance: RIVAROXABAN
     Indication: ANTICOAGULANT THERAPY
  55. AMLODIPINE [Concomitant]
     Active Substance: AMLODIPINE BESYLATE
     Indication: HYPERTENSION
     Dosage: 5 MG, QD (1-0-0)
     Route: 065
     Dates: start: 20130805
  56. PANTOLOC//PANTOPRAZOLE SODIUM SESQUIHYDRATE [Concomitant]
     Active Substance: PANTOPRAZOLE SODIUM
     Indication: PRODUCT USED FOR UNKNOWN INDICATION
     Dosage: 40 MG, QD
     Route: 065
     Dates: start: 20130813
  57. DIABETEX [Concomitant]
     Indication: PRODUCT USED FOR UNKNOWN INDICATION
     Dosage: 850 MG, QD
  58. UROSIN [Concomitant]
     Active Substance: ALLOPURINOL
     Dosage: 0.5 DF, MON, WED, FRI
  59. UROSIN [Concomitant]
     Active Substance: ALLOPURINOL
     Dosage: 0.5 DF, MON, WED, FRI
  60. NEURONTIN [Concomitant]
     Active Substance: GABAPENTIN
     Route: 065
  61. NEURONTIN [Concomitant]
     Active Substance: GABAPENTIN
     Route: 065
  62. CLYSMOL [Concomitant]
  63. ALLOPURINOL. [Concomitant]
     Active Substance: ALLOPURINOL
     Dosage: 0.5 DF, QD
     Route: 065
  64. CALCIUM GLYCEROPHOSPHATE\CELLULOSE\POLYETHYLENE GLYCOL\SACCHARIN SODIUM\SODIUM HYDROXIDE\SODIUM LAURYL SULFATE\SODIUM MAGNESIUM SILICATE\SODIUM MONOFLUOROPHOSPHATE\SORBITOL\WATER [Concomitant]
     Active Substance: CALCIUM GLYCEROPHOSPHATE\POLYETHYLENE GLYCOLS\POWDERED CELLULOSE\SACCHARIN SODIUM DIHYDRATE\SODIUM HYDROXIDE\SODIUM LAURYL SULFATE\SODIUM MAGNESIUM SILICATE\SODIUM MONOFLUOROPHOSPHATE\SORBITOL\WATER
     Route: 065
  65. XARELTO [Concomitant]
     Active Substance: RIVAROXABAN
     Indication: THROMBOSIS PROPHYLAXIS
     Dosage: 15 MG, QD (1-0-0)
     Route: 065
     Dates: start: 20130805
  66. OTRIVIN [Concomitant]
     Active Substance: XYLOMETAZOLINE
  67. UROSIN [Concomitant]
     Active Substance: ALLOPURINOL
     Dosage: 0.5 DF, ON EVEN DAY
     Route: 065
  68. UROSIN [Concomitant]
     Active Substance: ALLOPURINOL
     Route: 065
  69. UROSIN [Concomitant]
     Active Substance: ALLOPURINOL
     Dosage: 0.5 DF, MON, WED, FRI
  70. AUGMENTIN [Concomitant]
     Active Substance: AMOXICILLIN\CLAVULANATE POTASSIUM
     Indication: PRODUCT USED FOR UNKNOWN INDICATION
     Dosage: 1 G, QD (3X1)
     Route: 065
  71. KEFLEX [Concomitant]
     Active Substance: CEPHALEXIN
  72. KEFLEX [Concomitant]
     Active Substance: CEPHALEXIN
  73. TRITTICO [Concomitant]
     Active Substance: TRAZODONE HYDROCHLORIDE
     Route: 065
  74. JAKAVI [Suspect]
     Active Substance: RUXOLITINIB
     Dosage: 5 MG, BID, (2-0-1)
     Route: 048
     Dates: start: 20140717
  75. XARELTO [Concomitant]
     Active Substance: RIVAROXABAN
     Indication: COAGULOPATHY
  76. DIABETEX [Concomitant]
     Route: 065
  77. DIABETEX [Concomitant]
     Route: 065
  78. DIABETEX [Concomitant]
     Route: 065
  79. NEXIUM [Concomitant]
     Active Substance: ESOMEPRAZOLE MAGNESIUM
     Dosage: 40 MG, QD (1-0-0)
  80. UROSIN [Concomitant]
     Active Substance: ALLOPURINOL
     Indication: HYPERURICAEMIA
     Dosage: 300 MG, QD
  81. AUGMENTIN [Concomitant]
     Active Substance: AMOXICILLIN\CLAVULANATE POTASSIUM
  82. KEFLEX [Concomitant]
     Active Substance: CEPHALEXIN
     Indication: PRODUCT USED FOR UNKNOWN INDICATION
     Dosage: 1 DF, TID
     Route: 065
  83. ALLOPURINOL. [Concomitant]
     Active Substance: ALLOPURINOL
     Indication: PRODUCT USED FOR UNKNOWN INDICATION
     Dosage: 300 MG, ON EVEN DAYS
     Route: 065
  84. ALLOPURINOL. [Concomitant]
     Active Substance: ALLOPURINOL
     Dosage: 0.5 DF, QD
     Route: 065
  85. CALCIUM GLYCEROPHOSPHATE\CELLULOSE\POLYETHYLENE GLYCOL\SACCHARIN SODIUM\SODIUM HYDROXIDE\SODIUM LAURYL SULFATE\SODIUM MAGNESIUM SILICATE\SODIUM MONOFLUOROPHOSPHATE\SORBITOL\WATER [Concomitant]
     Active Substance: CALCIUM GLYCEROPHOSPHATE\POLYETHYLENE GLYCOLS\POWDERED CELLULOSE\SACCHARIN SODIUM DIHYDRATE\SODIUM HYDROXIDE\SODIUM LAURYL SULFATE\SODIUM MAGNESIUM SILICATE\SODIUM MONOFLUOROPHOSPHATE\SORBITOL\WATER
     Indication: PRODUCT USED FOR UNKNOWN INDICATION
     Dosage: 1 DF, QD
  86. TRITTICO [Concomitant]
     Active Substance: TRAZODONE HYDROCHLORIDE
     Route: 065
  87. METFORMIN [Concomitant]
     Active Substance: METFORMIN HYDROCHLORIDE
     Dosage: 850 MG, QD (0-0-1)
     Route: 065
  88. OTRIVIN [Concomitant]
     Active Substance: XYLOMETAZOLINE
  89. DIABETEX [Concomitant]
     Route: 065
  90. UROSIN [Concomitant]
     Active Substance: ALLOPURINOL
     Dosage: UNK, QD
     Route: 065
  91. UROSIN [Concomitant]
     Active Substance: ALLOPURINOL
     Dosage: 0.5 DF, MON, WED, FRI
  92. CLYSMOL [Concomitant]
     Indication: ABDOMINAL PAIN
     Dosage: 1 DF, BID
     Route: 065
  93. ALLOPURINOL. [Concomitant]
     Active Substance: ALLOPURINOL
     Dosage: 300 MG, ON EVEN DAYS
     Route: 065
  94. XEFO [Concomitant]
     Active Substance: LORNOXICAM
     Indication: PAIN
     Dosage: 8 MG, IN CASE OF PAIN
     Route: 065
  95. XEFO [Concomitant]
     Active Substance: LORNOXICAM
     Dosage: 8 MG, IN CASE OF PAIN
     Route: 065
  96. CALCIUM GLYCEROPHOSPHATE\CELLULOSE\POLYETHYLENE GLYCOL\SACCHARIN SODIUM\SODIUM HYDROXIDE\SODIUM LAURYL SULFATE\SODIUM MAGNESIUM SILICATE\SODIUM MONOFLUOROPHOSPHATE\SORBITOL\WATER [Concomitant]
     Active Substance: CALCIUM GLYCEROPHOSPHATE\POLYETHYLENE GLYCOLS\POWDERED CELLULOSE\SACCHARIN SODIUM DIHYDRATE\SODIUM HYDROXIDE\SODIUM LAURYL SULFATE\SODIUM MAGNESIUM SILICATE\SODIUM MONOFLUOROPHOSPHATE\SORBITOL\WATER
     Route: 065

REACTIONS (46)
  - Aneurysm [Unknown]
  - Neuropathy peripheral [Unknown]
  - Infected dermal cyst [Recovering/Resolving]
  - Spinal pain [Unknown]
  - Palpitations [Recovered/Resolved]
  - Haematoma [Unknown]
  - Nausea [Unknown]
  - Aneurysm [Recovered/Resolved]
  - Thrombocytopenia [Recovered/Resolved]
  - Condition aggravated [Recovered/Resolved with Sequelae]
  - Aortic stenosis [Unknown]
  - Blood lactate dehydrogenase increased [Unknown]
  - Pleural effusion [Recovered/Resolved]
  - Pacemaker generated arrhythmia [Recovered/Resolved]
  - Pneumonia [Recovered/Resolved]
  - Aortic arteriosclerosis [Unknown]
  - Spinal osteoarthritis [Unknown]
  - Weight decreased [Unknown]
  - Spinal pain [Recovered/Resolved]
  - Mitral valve incompetence [Recovering/Resolving]
  - Escherichia urinary tract infection [Recovering/Resolving]
  - Osteoarthritis [Unknown]
  - Platelet count decreased [Unknown]
  - Hyperventilation [Recovered/Resolved]
  - Groin pain [Recovered/Resolved]
  - Pneumonia [Recovered/Resolved]
  - Thrombocytopenia [Recovered/Resolved]
  - Anaemia [Recovering/Resolving]
  - Polyneuropathy [Unknown]
  - Vertebral foraminal stenosis [Unknown]
  - Blood pressure increased [Unknown]
  - Dyspnoea [Recovered/Resolved]
  - Hypothyroidism [Recovered/Resolved]
  - Neck pain [Recovered/Resolved]
  - Paraesthesia [Recovered/Resolved]
  - Spinal pain [Recovered/Resolved]
  - Spinal pain [Recovered/Resolved]
  - Dyspnoea [Recovered/Resolved]
  - Blood glucose increased [Unknown]
  - Arteriosclerosis [Unknown]
  - Oedema peripheral [Recovering/Resolving]
  - Serum ferritin increased [Unknown]
  - Post procedural haemorrhage [Recovered/Resolved]
  - Spinal pain [Recovered/Resolved]
  - Splenomegaly [Unknown]
  - Nausea [Recovered/Resolved]

NARRATIVE: CASE EVENT DATE: 20111128
